FAERS Safety Report 19423092 (Version 2)
Quarter: 2021Q2

REPORT INFORMATION
  Report Type: Report from Study
  Country: US (occurrence: US)
  Receive Date: 20210616
  Receipt Date: 20210618
  Transmission Date: 20210717
  Serious: No
  Sender: FDA-Public Use
  Company Number: US-MYLANLABS-2020M1002573

PATIENT
  Age: 48 Year
  Sex: Female
  Weight: 72.57 kg

DRUGS (2)
  1. GLATIRAMER ACETATE INJECTION [Suspect]
     Active Substance: GLATIRAMER ACETATE
     Indication: SCOLIOSIS
  2. GLATIRAMER ACETATE INJECTION [Suspect]
     Active Substance: GLATIRAMER ACETATE
     Indication: RELAPSING-REMITTING MULTIPLE SCLEROSIS
     Dosage: 40 MILLIGRAM, 3XW
     Route: 058

REACTIONS (21)
  - Injection site pain [Recovered/Resolved]
  - Back pain [Unknown]
  - Presyncope [Unknown]
  - Abdominal discomfort [Unknown]
  - Fall [Unknown]
  - Injection site erythema [Recovered/Resolved]
  - Injection site swelling [Recovered/Resolved]
  - Injection site bruising [Unknown]
  - Depression [Unknown]
  - Dizziness [Not Recovered/Not Resolved]
  - Palpitations [Recovering/Resolving]
  - Injection site urticaria [Recovered/Resolved]
  - Discomfort [Unknown]
  - Injection site warmth [Recovered/Resolved]
  - Insomnia [Unknown]
  - Injection site mass [Not Recovered/Not Resolved]
  - Arthralgia [Not Recovered/Not Resolved]
  - Anxiety [Unknown]
  - Frustration tolerance decreased [Unknown]
  - Musculoskeletal discomfort [Unknown]
  - Pain in extremity [Unknown]

NARRATIVE: CASE EVENT DATE: 20191230
